FAERS Safety Report 24638216 (Version 2)
Quarter: 2025Q1

REPORT INFORMATION
  Report Type: Spontaneous
  Country: JP (occurrence: JP)
  Receive Date: 20241119
  Receipt Date: 20250207
  Transmission Date: 20250409
  Serious: Yes (Hospitalization)
  Sender: NEUROCRINE BIOSCIENCES
  Company Number: JP-NEUROCRINE BIOSCIENCES INC.-2024NBI10679

PATIENT
  Age: 25 Year
  Sex: Female

DRUGS (8)
  1. VALBENAZINE [Suspect]
     Active Substance: VALBENAZINE
     Indication: Tardive dyskinesia
     Route: 065
  2. VALBENAZINE [Suspect]
     Active Substance: VALBENAZINE
     Indication: Dystonia
  3. BIPERIDEN [Concomitant]
     Active Substance: BIPERIDEN
     Indication: Dystonia
  4. LORAZEPAM [Concomitant]
     Active Substance: LORAZEPAM
     Indication: Tardive dyskinesia
  5. LORAZEPAM [Concomitant]
     Active Substance: LORAZEPAM
     Indication: Dystonia
  6. TOCOPHEROL ACETATE [TOCOPHERYL ACETATE] [Concomitant]
     Indication: Tardive dyskinesia
  7. TOCOPHEROL ACETATE [TOCOPHERYL ACETATE] [Concomitant]
     Indication: Dystonia
  8. CLONAZEPAM [Concomitant]
     Active Substance: CLONAZEPAM
     Indication: Dystonia

REACTIONS (4)
  - Tardive dyskinesia [Recovering/Resolving]
  - Dystonia [Recovering/Resolving]
  - Drug effect less than expected [Unknown]
  - Off label use [Unknown]
